FAERS Safety Report 4746071-4 (Version None)
Quarter: 2005Q3

REPORT INFORMATION
  Report Type: 
  Country: None (occurrence: None)
  Receive Date: 20050816
  Receipt Date: 20050720
  Transmission Date: 20060218
  Serious: Yes (Hospitalization)
  Sender: FDA-Public Use
  Company Number: US-ROCHE-411542

PATIENT
  Age: 51 Year
  Sex: Female
  Weight: 92.1 kg

DRUGS (4)
  1. PEGASYS [Suspect]
     Indication: HEPATITIS C
     Route: 058
     Dates: start: 20050119, end: 20050704
  2. COPEGUS [Suspect]
     Indication: HEPATITIS C
     Route: 048
     Dates: start: 20050119, end: 20050704
  3. CLARITIN [Concomitant]
     Indication: SEASONAL ALLERGY
     Route: 048
     Dates: end: 20050629
  4. ANTIHYPERTENSIVE MEDICATION NOS [Concomitant]
     Indication: HYPERTENSION
     Route: 048
     Dates: end: 20050629

REACTIONS (8)
  - ALOPECIA [None]
  - BLOOD PRESSURE DECREASED [None]
  - CHOLELITHIASIS [None]
  - INTESTINAL ISCHAEMIA [None]
  - LARGE INTESTINAL ULCER [None]
  - PANCREATITIS [None]
  - POLYP [None]
  - RECTAL HAEMORRHAGE [None]
